FAERS Safety Report 21418271 (Version 1)
Quarter: 2022Q4

REPORT INFORMATION
  Report Type: Spontaneous
  Country: US (occurrence: None)
  Receive Date: 20221005
  Receipt Date: 20221005
  Transmission Date: 20230113
  Serious: Yes (Hospitalization)
  Sender: FDA-Public Use
  Company Number: None

PATIENT
  Age: 51 Year
  Sex: Female

DRUGS (1)
  1. OCRELIZUMAB [Suspect]
     Active Substance: OCRELIZUMAB
     Indication: Multiple sclerosis
     Dates: start: 20220714, end: 20220727

REACTIONS (6)
  - Jaundice [None]
  - Vomiting [None]
  - Asthenia [None]
  - Malaise [None]
  - Asthenia [None]
  - Hepatic enzyme increased [None]

NARRATIVE: CASE EVENT DATE: 20220817
